FAERS Safety Report 22534033 (Version 1)
Quarter: 2023Q2

REPORT INFORMATION
  Report Type: Spontaneous
  Country: EG (occurrence: EG)
  Receive Date: 20230608
  Receipt Date: 20230608
  Transmission Date: 20230721
  Serious: Yes (Death)
  Sender: FDA-Public Use
  Company Number: EG-SA-2023SA172345

PATIENT
  Age: 2 Week
  Sex: Male

DRUGS (8)
  1. INSULIN GLARGINE [Suspect]
     Active Substance: INSULIN GLARGINE
     Dosage: UNK
     Route: 064
  2. ACTRAPID [Concomitant]
     Active Substance: INSULIN HUMAN
     Dosage: UNK UNK, QD
     Route: 064
  3. COBALT [Concomitant]
     Active Substance: COBALT
     Dosage: UNK
     Route: 064
  4. FOLIC ACID [Concomitant]
     Active Substance: FOLIC ACID
     Dosage: UNK
     Route: 064
  5. CALCIUM [Concomitant]
     Active Substance: CALCIUM
     Dosage: UNK
     Route: 064
  6. IRON [Concomitant]
     Active Substance: IRON
     Dosage: UNK
     Route: 064
  7. VITAMIN C [Concomitant]
     Active Substance: ASCORBIC ACID
     Dosage: UNK
     Route: 064
  8. MAGNESIUM [Concomitant]
     Active Substance: MAGNESIUM
     Dosage: UNK
     Route: 064

REACTIONS (3)
  - Bacterial infection [Fatal]
  - Foetal exposure during pregnancy [Fatal]
  - Premature baby [Unknown]

NARRATIVE: CASE EVENT DATE: 20220601
